FAERS Safety Report 11376331 (Version 2)
Quarter: 2015Q3

REPORT INFORMATION
  Report Type: Spontaneous
  Country: US (occurrence: US)
  Receive Date: 20150813
  Receipt Date: 20150925
  Transmission Date: 20151125
  Serious: No
  Sender: FDA-Public Use
  Company Number: US-PFIZER INC-2015265840

PATIENT
  Age: 74 Year
  Sex: Female
  Weight: 78 kg

DRUGS (1)
  1. LATANOPROST. [Suspect]
     Active Substance: LATANOPROST
     Indication: GLAUCOMA
     Dosage: UNK (ONE DROP IN EACH EYE AT BED TIME), 1X/DAY
     Route: 031
     Dates: start: 2010

REACTIONS (3)
  - Product container issue [Unknown]
  - Drug dose omission [Recovered/Resolved]
  - Accidental exposure to product [Unknown]
